FAERS Safety Report 8252872-0 (Version None)
Quarter: 2012Q2

REPORT INFORMATION
  Report Type: 
  Country: None (occurrence: None)
  Receive Date: 20120402
  Receipt Date: 20120106
  Transmission Date: 20120825
  Serious: No
  Sender: FDA-Public Use
  Company Number: US-ABBOTT-12P-163-0891727-00

PATIENT
  Sex: Male
  Weight: 90.346 kg

DRUGS (4)
  1. ANDROGEL [Suspect]
     Indication: BLOOD TESTOSTERONE DECREASED
     Route: 061
     Dates: start: 20100101
  2. LOSARTAN POTASSIUM [Concomitant]
     Indication: HYPERTENSION
  3. PRILOSEC [Concomitant]
     Indication: PRODUCT USED FOR UNKNOWN INDICATION
  4. ANDROGEL [Suspect]
     Dosage: PACKETS
     Route: 061
     Dates: start: 20111201, end: 20111201

REACTIONS (2)
  - POLLAKIURIA [None]
  - MICTURITION URGENCY [None]
